FAERS Safety Report 6257271-9 (Version None)
Quarter: 2009Q2

REPORT INFORMATION
  Report Type: 
  Country: None (occurrence: None)
  Receive Date: 20090630
  Receipt Date: 20090630
  Transmission Date: 20091009
  Serious: Yes (Other)
  Sender: FDA-Public Use
  Company Number: None

PATIENT
  Sex: Male
  Weight: 58.9676 kg

DRUGS (1)
  1. SULFAMETHOXAZOLE AND TRIMETHOPRIM [Suspect]
     Indication: STAPHYLOCOCCAL INFECTION
     Dosage: 2 TABLETS TWICE DAILY
     Dates: start: 20090615, end: 20090625

REACTIONS (9)
  - AGITATION [None]
  - DYSPNOEA [None]
  - FEAR [None]
  - HALLUCINATION, AUDITORY [None]
  - PALPITATIONS [None]
  - PANIC ATTACK [None]
  - SCHIZOPHRENIA [None]
  - SPEECH DISORDER [None]
  - TREMOR [None]
